FAERS Safety Report 9283555 (Version 1)
Quarter: 2013Q2

REPORT INFORMATION
  Report Type: Spontaneous
  Country: GB (occurrence: None)
  Receive Date: 20130506
  Receipt Date: 20130506
  Transmission Date: 20140414
  Serious: Yes (Other)
  Sender: FDA-Public Use
  Company Number: E2B_00000787

PATIENT
  Age: 43 Year
  Sex: Female
  Weight: 67.12 kg

DRUGS (1)
  1. SERTRALINE HYDROCHLORIDE (UNKNOWN) [Suspect]
     Indication: ANXIETY
     Route: 048
     Dates: start: 20121207

REACTIONS (3)
  - Hyperhidrosis [None]
  - Insomnia [None]
  - Dehydration [None]
